FAERS Safety Report 9834212 (Version 3)
Quarter: 2014Q1

REPORT INFORMATION
  Report Type: Spontaneous
  Country: DE (occurrence: DE)
  Receive Date: 20140122
  Receipt Date: 20140303
  Transmission Date: 20141002
  Serious: Yes (Other)
  Sender: FDA-Public Use
  Company Number: DE-ASTELLAS-2013EU010369

PATIENT
  Age: 76 Year
  Sex: Male
  Weight: 70 kg

DRUGS (4)
  1. XTANDI [Suspect]
     Indication: NEOPLASM PROSTATE
     Dosage: 160 MG, UID/QD
     Route: 048
     Dates: start: 20131101, end: 20140114
  2. TRENANTONE [Concomitant]
     Indication: NEOPLASM PROSTATE
     Dosage: 1 DF, OTHER
     Route: 058
     Dates: start: 201001
  3. XGEVA [Concomitant]
     Indication: NEOPLASM PROSTATE
     Dosage: UNK
     Route: 058
  4. ZYTIGA [Concomitant]
     Dosage: 1000 MG, UNKNOWN/D
     Route: 065
     Dates: start: 201302, end: 201310

REACTIONS (6)
  - Asthenia [Not Recovered/Not Resolved]
  - Decreased appetite [Not Recovered/Not Resolved]
  - Weight decreased [Not Recovered/Not Resolved]
  - Nausea [Not Recovered/Not Resolved]
  - Fatigue [Not Recovered/Not Resolved]
  - Depression [Not Recovered/Not Resolved]
